FAERS Safety Report 13540906 (Version 1)
Quarter: 2017Q2

REPORT INFORMATION
  Report Type: Spontaneous
  Country: US (occurrence: US)
  Receive Date: 20170512
  Receipt Date: 20170512
  Transmission Date: 20170830
  Serious: Yes (Hospitalization)
  Sender: FDA-Public Use
  Company Number: US-VIFOR (INTERNATIONAL) INC.-VIT-2017-05085

PATIENT
  Sex: Female

DRUGS (1)
  1. VELTASSA [Suspect]
     Active Substance: PATIROMER
     Indication: PRODUCT USED FOR UNKNOWN INDICATION
     Route: 048
     Dates: start: 201704, end: 2017

REACTIONS (5)
  - Vomiting [Unknown]
  - Blood magnesium decreased [Unknown]
  - Blood sodium decreased [Unknown]
  - Malaise [Unknown]
  - Dysphonia [Unknown]

NARRATIVE: CASE EVENT DATE: 201704
